FAERS Safety Report 6043803-2 (Version None)
Quarter: 2009Q1

REPORT INFORMATION
  Report Type: 
  Country: None (occurrence: None)
  Receive Date: 20090120
  Receipt Date: 20090115
  Transmission Date: 20090719
  Serious: Yes (Death, Other)
  Sender: FDA-Public Use
  Company Number: PHBS2009KR00514

PATIENT
  Age: 62 Year
  Sex: Male

DRUGS (8)
  1. BASILIXIMAB [Suspect]
     Indication: LIVER TRANSPLANT
     Dosage: 20 MG ON DAY 0 AND DAY 4
  2. TACROLIMUS [Suspect]
     Indication: LIVER TRANSPLANT
  3. METHYLPREDNISOLONE 16MG TAB [Concomitant]
     Indication: LIVER TRANSPLANT
     Dosage: 1000 MG
  4. PREDNISOLONE [Concomitant]
     Indication: LIVER TRANSPLANT
     Dosage: 10 MG/DAY
  5. CEFTIZOXIME [Concomitant]
     Indication: ANTIBIOTIC PROPHYLAXIS
  6. LEVOFLOXACIN [Concomitant]
     Indication: ANTIBIOTIC PROPHYLAXIS
  7. RANITIDINE [Concomitant]
     Indication: PROPHYLAXIS AGAINST GASTROINTESTINAL ULCER
  8. NYSTATIN [Concomitant]
     Indication: ANTIFUNGAL PROPHYLAXIS

REACTIONS (16)
  - BLISTER INFECTED [None]
  - BLOOD CULTURE POSITIVE [None]
  - CARDIAC VALVE VEGETATION [None]
  - CEREBRAL INFARCTION [None]
  - COMPLICATIONS OF TRANSPLANTED LIVER [None]
  - DRUG TOXICITY [None]
  - ENTEROCOCCAL INFECTION [None]
  - HERPES ZOSTER [None]
  - MULTI-ORGAN FAILURE [None]
  - PANCYTOPENIA [None]
  - PERITONEAL FLUID ANALYSIS ABNORMAL [None]
  - PNEUMONIA [None]
  - PYREXIA [None]
  - RASH ERYTHEMATOUS [None]
  - SEPSIS [None]
  - STEVENS-JOHNSON SYNDROME [None]
